FAERS Safety Report 15934414 (Version 4)
Quarter: 2019Q3

REPORT INFORMATION
  Report Type: Spontaneous
  Country: US (occurrence: US)
  Receive Date: 20190207
  Receipt Date: 20190730
  Transmission Date: 20191004
  Serious: Yes (Other)
  Sender: FDA-Public Use
  Company Number: US-ASTRAZENECA-2018SF13635

PATIENT
  Age: 71 Year
  Sex: Female

DRUGS (29)
  1. NEXIUM [Suspect]
     Active Substance: ESOMEPRAZOLE MAGNESIUM
     Route: 048
  2. LANTUS [Concomitant]
     Active Substance: INSULIN GLARGINE
  3. FOLIC ACID. [Concomitant]
     Active Substance: FOLIC ACID
  4. METFORMIN [Concomitant]
     Active Substance: METFORMIN HYDROCHLORIDE
  5. TOPIRAMATE. [Concomitant]
     Active Substance: TOPIRAMATE
  6. FLUTICASONE. [Concomitant]
     Active Substance: FLUTICASONE
  7. NEXIUM 24HR [Suspect]
     Active Substance: ESOMEPRAZOLE MAGNESIUM
     Route: 048
  8. BIOTIN [Concomitant]
     Active Substance: BIOTIN
  9. PRILOSEC [Suspect]
     Active Substance: OMEPRAZOLE MAGNESIUM
     Route: 048
  10. PREVACID [Suspect]
     Active Substance: LANSOPRAZOLE
     Route: 065
  11. SERTRALINE [Concomitant]
     Active Substance: SERTRALINE HYDROCHLORIDE
  12. HUMALIN [Concomitant]
     Active Substance: INSULIN NOS
  13. ATORVASTATIN [Concomitant]
     Active Substance: ATORVASTATIN
  14. MELOXICAM. [Concomitant]
     Active Substance: MELOXICAM
  15. SENNA [Concomitant]
     Active Substance: SENNA LEAF\SENNOSIDES\SENNOSIDES A AND B
  16. NEXIUM 24HR [Suspect]
     Active Substance: ESOMEPRAZOLE MAGNESIUM
     Route: 048
     Dates: start: 20131125, end: 20140714
  17. PRILOSEC [Suspect]
     Active Substance: OMEPRAZOLE MAGNESIUM
     Route: 048
     Dates: start: 20131125, end: 20140714
  18. PREVACID [Suspect]
     Active Substance: LANSOPRAZOLE
     Route: 065
     Dates: start: 19950610, end: 20160714
  19. VICTOZA [Concomitant]
     Active Substance: LIRAGLUTIDE
  20. NABUMETONE. [Concomitant]
     Active Substance: NABUMETONE
  21. IPRATROPIUM BROMIDE. [Concomitant]
     Active Substance: IPRATROPIUM BROMIDE
  22. NEXIUM [Suspect]
     Active Substance: ESOMEPRAZOLE MAGNESIUM
     Route: 048
     Dates: start: 20131125, end: 20140714
  23. PRILOSEC [Suspect]
     Active Substance: OMEPRAZOLE MAGNESIUM
     Route: 048
     Dates: start: 19891014, end: 20160714
  24. PREVACID [Suspect]
     Active Substance: LANSOPRAZOLE
     Route: 065
     Dates: start: 20131125, end: 20140714
  25. GABAPENTIN. [Concomitant]
     Active Substance: GABAPENTIN
  26. ZOLPIDEM [Concomitant]
     Active Substance: ZOLPIDEM TARTRATE
  27. PRILOSEC OTC [Suspect]
     Active Substance: OMEPRAZOLE MAGNESIUM
     Route: 048
  28. CETRIZINE [Concomitant]
     Active Substance: CETIRIZINE HYDROCHLORIDE
  29. PREVACID 24 HR [Suspect]
     Active Substance: LANSOPRAZOLE
     Route: 065

REACTIONS (2)
  - Renal injury [Unknown]
  - Chronic kidney disease [Not Recovered/Not Resolved]

NARRATIVE: CASE EVENT DATE: 2018
